FAERS Safety Report 13138280 (Version 1)
Quarter: 2017Q1

REPORT INFORMATION
  Report Type: Spontaneous
  Country: US (occurrence: US)
  Receive Date: 20170122
  Receipt Date: 20170122
  Transmission Date: 20170428
  Serious: Yes (Hospitalization)
  Sender: FDA-Public Use
  Company Number: None

PATIENT
  Age: 54 Year
  Sex: Male
  Weight: 145.2 kg

DRUGS (3)
  1. 5-FLUOROURACIL (5-FU) [Suspect]
     Active Substance: FLUOROURACIL
     Dates: end: 20130925
  2. ELOXATIN [Suspect]
     Active Substance: OXALIPLATIN
     Dates: end: 20140325
  3. LEUCOVORIN CALCIUM. [Suspect]
     Active Substance: LEUCOVORIN CALCIUM
     Dates: end: 20140325

REACTIONS (4)
  - Urinary tract abscess [None]
  - Proctalgia [None]
  - Anal incontinence [None]
  - Fistula [None]

NARRATIVE: CASE EVENT DATE: 20160107
